FAERS Safety Report 10451279 (Version 2)
Quarter: 2014Q3

REPORT INFORMATION
  Report Type: Spontaneous
  Country: FR (occurrence: FR)
  Receive Date: 20140912
  Receipt Date: 20140912
  Transmission Date: 20150326
  Serious: Yes (Hospitalization)
  Sender: FDA-Public Use
  Company Number: FR-PFIZER INC-2014201907

PATIENT
  Age: 80 Year
  Sex: Male
  Weight: 55 kg

DRUGS (9)
  1. INIPOMP [Suspect]
     Active Substance: PANTOPRAZOLE SODIUM
     Indication: GASTRITIS
     Dosage: 20 MG, 1X/DAY
     Route: 065
     Dates: start: 20140101, end: 20140731
  2. PIASCLEDINE [Suspect]
     Active Substance: AVOCADO OIL\SOYBEAN OIL
     Indication: OSTEOARTHRITIS
     Dosage: 1 DF, 1X/DAY
     Route: 065
     Dates: start: 20140101, end: 20140731
  3. TARDYFERON [Concomitant]
     Active Substance: FERROUS SULFATE\FOLIC ACID
     Dosage: UNK
     Dates: start: 20140614, end: 20140731
  4. ALTEIS [Suspect]
     Active Substance: OLMESARTAN MEDOXOMIL
     Indication: HYPERTENSION
     Dosage: 1 DF, 1X/DAY
     Route: 048
     Dates: start: 20140516, end: 20140731
  5. DEBRIDAT [Concomitant]
     Active Substance: TRIMEBUTINE MALEATE
     Dosage: UNK
     Dates: start: 20140101, end: 20140731
  6. TAHOR [Suspect]
     Active Substance: ATORVASTATIN CALCIUM
     Indication: HYPERCHOLESTEROLAEMIA
     Dosage: UNK
     Route: 048
     Dates: start: 20140701, end: 20140731
  7. XATRAL LP [Concomitant]
     Active Substance: ALFUZOSIN
     Dosage: UNK
     Dates: start: 20140101, end: 20140731
  8. KARDEGIC [Suspect]
     Active Substance: ASPIRIN LYSINE
     Dosage: 75 MG, 1X/DAY
     Route: 048
     Dates: start: 20140101
  9. INIPOMP [Suspect]
     Active Substance: PANTOPRAZOLE SODIUM
     Indication: GASTRODUODENAL ULCER

REACTIONS (5)
  - Abdominal pain lower [Recovering/Resolving]
  - Faeces discoloured [Recovering/Resolving]
  - Gastrointestinal motility disorder [Recovering/Resolving]
  - Pyrexia [Recovering/Resolving]
  - Back pain [Recovering/Resolving]

NARRATIVE: CASE EVENT DATE: 2014
